FAERS Safety Report 21795872 (Version 1)
Quarter: 2022Q4

REPORT INFORMATION
  Report Type: Spontaneous
  Country: US (occurrence: US)
  Receive Date: 20221229
  Receipt Date: 20221229
  Transmission Date: 20230112
  Serious: Yes (Other)
  Sender: FDA-Public Use
  Company Number: US-AMERICAN REGENT INC-2022003604

PATIENT
  Age: 55 Year
  Sex: Female

DRUGS (3)
  1. VENOFER [Suspect]
     Active Substance: IRON SUCROSE
     Indication: Iron deficiency anaemia
     Dosage: 300 MILLIGRAM, SINGLE
     Route: 042
     Dates: start: 20221117, end: 20221117
  2. VENOFER [Suspect]
     Active Substance: IRON SUCROSE
     Dosage: 300 MILLIGRAM, SINGLE
     Route: 042
     Dates: start: 20221202, end: 20221202
  3. VENOFER [Suspect]
     Active Substance: IRON SUCROSE
     Dosage: 400 MILLIGRAM, SINGLE
     Route: 042
     Dates: start: 20221216, end: 20221216

REACTIONS (2)
  - Limb discomfort [Recovered/Resolved]
  - Dyspnoea [Recovered/Resolved]

NARRATIVE: CASE EVENT DATE: 20221216
